FAERS Safety Report 19734862 (Version 1)
Quarter: 2021Q3

REPORT INFORMATION
  Report Type: Spontaneous
  Country: PR (occurrence: PR)
  Receive Date: 20210824
  Receipt Date: 20210824
  Transmission Date: 20211014
  Serious: Yes (Death, Other)
  Sender: FDA-Public Use
  Company Number: PR-TAKEDA-PR202003676

PATIENT
  Sex: Male
  Weight: 53 kg

DRUGS (2)
  1. ELAPRASE [Suspect]
     Active Substance: IDURSULFASE
     Indication: MUCOPOLYSACCHARIDOSIS II
     Dosage: 27 MILLIGRAM, 1/WEEK
     Route: 042
     Dates: start: 20181218
  2. ELAPRASE [Suspect]
     Active Substance: IDURSULFASE
     Dosage: 27 MILLIGRAM, 1X/WEEK
     Route: 042
     Dates: start: 20181218

REACTIONS (2)
  - Intentional product misuse [Unknown]
  - Death [Fatal]
